FAERS Safety Report 7597009-6 (Version None)
Quarter: 2011Q3

REPORT INFORMATION
  Report Type: 
  Country: None (occurrence: None)
  Receive Date: 20110708
  Receipt Date: 20110629
  Transmission Date: 20111222
  Serious: Yes (Hospitalization)
  Sender: FDA-Public Use
  Company Number: JP-SANOFI-AVENTIS-2011SA042921

PATIENT
  Sex: Female

DRUGS (3)
  1. PHENOBARBITAL TAB [Suspect]
     Route: 048
  2. PAROXETINE HCL [Suspect]
     Route: 048
  3. ZOLPIDEM [Suspect]
     Route: 048

REACTIONS (2)
  - TOXICITY TO VARIOUS AGENTS [None]
  - MULTIPLE DRUG OVERDOSE INTENTIONAL [None]
